FAERS Safety Report 5048531-8 (Version None)
Quarter: 2006Q3

REPORT INFORMATION
  Report Type: 
  Country: None (occurrence: None)
  Receive Date: 20060712
  Receipt Date: 20060407
  Transmission Date: 20061208
  Serious: Yes (Hospitalization)
  Sender: FDA-Public Use
  Company Number: FR-AVENTIS-200611292FR

PATIENT
  Age: 17 Year
  Sex: Female

DRUGS (2)
  1. BIRODOGYL [Suspect]
     Indication: TOOTH EXTRACTION
     Route: 048
     Dates: start: 20060216, end: 20060220
  2. PONSTYL [Suspect]
     Indication: TOOTH EXTRACTION
     Route: 048
     Dates: start: 20060216, end: 20060220

REACTIONS (4)
  - DERMATITIS BULLOUS [None]
  - MENTAL DISORDER [None]
  - MUNCHAUSEN'S SYNDROME [None]
  - TOXIC SKIN ERUPTION [None]
